FAERS Safety Report 19034658 (Version 1)
Quarter: 2021Q1

REPORT INFORMATION
  Report Type: Spontaneous
  Country: US (occurrence: US)
  Receive Date: 20210319
  Receipt Date: 20210319
  Transmission Date: 20210420
  Serious: No
  Sender: FDA-Public Use
  Company Number: US-INCYTE CORPORATION-2021IN001185

PATIENT

DRUGS (1)
  1. JAKAFI [Suspect]
     Active Substance: RUXOLITINIB
     Indication: COMPLICATIONS OF BONE MARROW TRANSPLANT
     Dosage: 5 MILLIGRAM, BID
     Route: 048
     Dates: start: 20210126

REACTIONS (4)
  - Asthenia [Unknown]
  - Off label use [Unknown]
  - Fatigue [Recovering/Resolving]
  - Decreased activity [Unknown]

NARRATIVE: CASE EVENT DATE: 20210126
